FAERS Safety Report 9032350 (Version 1)
Quarter: 2013Q1

REPORT INFORMATION
  Report Type: Spontaneous
  Country: NL (occurrence: NL)
  Receive Date: 20130125
  Receipt Date: 20130125
  Transmission Date: 20140127
  Serious: Yes (Other)
  Sender: FDA-Public Use
  Company Number: NL-B.I. PHARMACEUTICALS,INC./RIDGEFIELD-2013-NL-00039NL

PATIENT
  Sex: Female

DRUGS (2)
  1. PERSANTIN [Suspect]
  2. ASCAL CARDIO [Concomitant]
     Dosage: 50 MG

REACTIONS (1)
  - Transient ischaemic attack [Unknown]
